FAERS Safety Report 23396793 (Version 1)
Quarter: 2024Q1

REPORT INFORMATION
  Report Type: Spontaneous
  Country: US (occurrence: None)
  Receive Date: 20240111
  Receipt Date: 20240111
  Transmission Date: 20240410
  Serious: Yes (Hospitalization)
  Sender: FDA-Public Use
  Company Number: None

PATIENT
  Sex: Female

DRUGS (1)
  1. PULMOZYME [Suspect]
     Active Substance: DORNASE ALFA
     Indication: Myotonic dystrophy
     Dosage: FREQUENCY : DAILY;?
     Route: 055
     Dates: start: 20230816

REACTIONS (1)
  - Hospitalisation [None]
